FAERS Safety Report 13205690 (Version 1)
Quarter: 2017Q1

REPORT INFORMATION
  Report Type: Spontaneous
  Country: US (occurrence: US)
  Receive Date: 20170208
  Receipt Date: 20170208
  Transmission Date: 20170428
  Serious: Yes (Death, Life-Threatening, Hospitalization, Disabling, Other)
  Sender: FDA-Public Use
  Company Number: None

PATIENT
  Age: 67 Year
  Sex: Male
  Weight: 79.65 kg

DRUGS (1)
  1. AMIODARONE [Suspect]
     Active Substance: AMIODARONE
     Indication: ATRIAL FIBRILLATION
     Dosage: ?          QUANTITY:1 TABLET(S); EVERY 12 HOURS ORAL?
     Route: 048
     Dates: start: 20141015

REACTIONS (6)
  - Toxicity to various agents [None]
  - Aortic aneurysm [None]
  - Clostridium difficile colitis [None]
  - Interstitial lung disease [None]
  - Off label use [None]
  - Pneumonia [None]

NARRATIVE: CASE EVENT DATE: 20141015
